FAERS Safety Report 8196841-8 (Version None)
Quarter: 2012Q1

REPORT INFORMATION
  Report Type: 
  Country: None (occurrence: None)
  Receive Date: 20120227
  Receipt Date: 20111101
  Transmission Date: 20120608
  Serious: Yes (Hospitalization)
  Sender: FDA-Public Use
  Company Number: 334090

PATIENT
  Age: 55 Year
  Sex: Male
  Weight: 84.4 kg

DRUGS (5)
  1. LOVAZA [Concomitant]
  2. PRAVASTATIN [Concomitant]
  3. VICTOZA [Suspect]
     Indication: TYPE 2 DIABETES MELLITUS
     Dosage: 1.8 MG, QD, SUBCUTANEOUS
     Route: 058
     Dates: start: 20110101, end: 20110818
  4. LISINOPRIL [Concomitant]
  5. TRILIPIX [Concomitant]

REACTIONS (1)
  - PANCREATITIS [None]
